FAERS Safety Report 7887679-7 (Version None)
Quarter: 2011Q4

REPORT INFORMATION
  Report Type: 
  Country: None (occurrence: None)
  Receive Date: 20111103
  Receipt Date: 20111027
  Transmission Date: 20120403
  Serious: No
  Sender: FDA-Public Use
  Company Number: US-BIOGENIDEC-2011BI041376

PATIENT
  Sex: Female

DRUGS (4)
  1. AVONEX [Concomitant]
     Indication: MULTIPLE SCLEROSIS
     Route: 030
  2. TYSABRI [Suspect]
     Indication: MULTIPLE SCLEROSIS
     Route: 042
     Dates: start: 20090904
  3. STEROIDS (NOS) [Concomitant]
     Indication: PREMEDICATION
  4. BENADRYL [Concomitant]
     Indication: PREMEDICATION

REACTIONS (8)
  - TREMOR [None]
  - DEPRESSED MOOD [None]
  - FATIGUE [None]
  - GAIT DISTURBANCE [None]
  - FEELING ABNORMAL [None]
  - MALAISE [None]
  - ASTHENIA [None]
  - BLOOD PRESSURE DECREASED [None]
